FAERS Safety Report 5447825-1 (Version None)
Quarter: 2007Q3

REPORT INFORMATION
  Report Type: 
  Country: None (occurrence: None)
  Receive Date: 20070910
  Receipt Date: 20070829
  Transmission Date: 20080115
  Serious: Yes (Other)
  Sender: FDA-Public Use
  Company Number: US-PFIZER INC-2007072500

PATIENT
  Sex: Female
  Weight: 67.727 kg

DRUGS (1)
  1. LYRICA [Suspect]
     Indication: NERVE INJURY
     Dates: start: 20070601, end: 20070801

REACTIONS (16)
  - ANXIETY [None]
  - ARTHRALGIA [None]
  - BACK DISORDER [None]
  - BLOOD POTASSIUM DECREASED [None]
  - DEHYDRATION [None]
  - DIARRHOEA [None]
  - DISTURBANCE IN ATTENTION [None]
  - EYE DISORDER [None]
  - INSOMNIA [None]
  - MALAISE [None]
  - MYALGIA [None]
  - PARAESTHESIA [None]
  - RENAL DISORDER [None]
  - TREMOR [None]
  - VOMITING [None]
  - WEIGHT DECREASED [None]
